FAERS Safety Report 8432893-5 (Version None)
Quarter: 2012Q2

REPORT INFORMATION
  Report Type: 
  Country: None (occurrence: None)
  Receive Date: 20120613
  Receipt Date: 20120531
  Transmission Date: 20120825
  Serious: Yes (Hospitalization)
  Sender: FDA-Public Use
  Company Number: FR-CELGENEUS-056-21880-12060074

PATIENT
  Sex: Male

DRUGS (3)
  1. PENTOXIFYLLINE [Suspect]
     Indication: THROMBOSIS
     Dosage: 20 MILLIGRAM
     Route: 048
     Dates: start: 20120215, end: 20120329
  2. REVLIMID [Suspect]
     Indication: MULTIPLE MYELOMA
     Dosage: 25 MILLIGRAM
     Route: 048
     Dates: start: 20120112, end: 20120329
  3. DEXAMETHASONE [Concomitant]
     Route: 065

REACTIONS (1)
  - TUBULOINTERSTITIAL NEPHRITIS [None]
